FAERS Safety Report 4950791-6 (Version None)
Quarter: 2006Q1

REPORT INFORMATION
  Report Type: 
  Country: None (occurrence: None)
  Receive Date: 20060321
  Receipt Date: 20060321
  Transmission Date: 20060701
  Serious: Yes (Hospitalization)
  Sender: FDA-Public Use
  Company Number: None

PATIENT
  Age: 67 Year
  Sex: Male
  Weight: 72 kg

DRUGS (7)
  1. CYCLOPHOSPHAMIDE [Suspect]
     Indication: ACUTE LYMPHOCYTIC LEUKAEMIA
     Dosage: 1800 MG
  2. CYTARABINE [Suspect]
     Dosage: 6000 MG
  3. DEXAMETHASONE TAB [Suspect]
     Dosage: 16 PERCENT
  4. G-CSF (FILGRASTIM, AMGEN) [Suspect]
     Dosage: 2450 MCG
  5. ELSPAR [Suspect]
     Dosage: 18000 UNIT
  6. METHOTREXATE [Suspect]
     Dosage: 15 MG
  7. BACTRIM DS [Suspect]
     Dosage: 24 N/A

REACTIONS (8)
  - CHILLS [None]
  - FEBRILE NEUTROPENIA [None]
  - HAEMATOCRIT DECREASED [None]
  - HAEMOGLOBIN DECREASED [None]
  - PLATELET COUNT DECREASED [None]
  - PLATELET DISORDER [None]
  - PYREXIA [None]
  - TREMOR [None]
